FAERS Safety Report 13920897 (Version 1)
Quarter: 2017Q3

REPORT INFORMATION
  Report Type: Spontaneous
  Country: US (occurrence: None)
  Receive Date: 20170830
  Receipt Date: 20170830
  Transmission Date: 20171127
  Serious: No
  Sender: FDA-Public Use
  Company Number: None

PATIENT
  Age: 36 Year
  Sex: Female

DRUGS (13)
  1. PROTONIX [Concomitant]
     Active Substance: PANTOPRAZOLE SODIUM
  2. ANUCORT-HC [Concomitant]
     Active Substance: HYDROCORTISONE ACETATE
  3. FUROSEMIDE. [Concomitant]
     Active Substance: FUROSEMIDE
  4. MONTELUKAST [Concomitant]
     Active Substance: MONTELUKAST SODIUM
  5. SPIRONOLACT [Concomitant]
     Active Substance: SPIRONOLACTONE
  6. URSODIOL. [Concomitant]
     Active Substance: URSODIOL
  7. LACTULOSE. [Concomitant]
     Active Substance: LACTULOSE
  8. ZYRTEC [Concomitant]
     Active Substance: CETIRIZINE HYDROCHLORIDE
  9. OMEPRAZOLE. [Concomitant]
     Active Substance: OMEPRAZOLE
  10. GENERLAC [Concomitant]
     Active Substance: LACTULOSE
  11. MAGNESIUM-OX [Concomitant]
  12. OCALIVA [Suspect]
     Active Substance: OBETICHOLIC ACID
     Indication: BILIARY CIRRHOSIS PRIMARY
     Route: 048
     Dates: start: 20170411
  13. PROPRANOLOL [Concomitant]
     Active Substance: PROPRANOLOL HYDROCHLORIDE

REACTIONS (2)
  - Anxiety [None]
  - Pruritus [None]

NARRATIVE: CASE EVENT DATE: 20170411
